FAERS Safety Report 17043838 (Version 1)
Quarter: 2019Q4

REPORT INFORMATION
  Report Type: Spontaneous
  Country: US (occurrence: US)
  Receive Date: 20191118
  Receipt Date: 20191118
  Transmission Date: 20200122
  Serious: Yes (Other)
  Sender: FDA-Public Use
  Company Number: US-PFIZER INC-2019496268

PATIENT
  Age: 75 Year
  Sex: Male

DRUGS (1)
  1. TAFAMIDIS [Suspect]
     Active Substance: TAFAMIDIS MEGLUMINE
     Indication: FAMILIAL AMYLOIDOSIS
     Dosage: 61 MG, UNK
     Dates: start: 201812

REACTIONS (8)
  - Condition aggravated [Unknown]
  - Arthralgia [Unknown]
  - Tendon disorder [Unknown]
  - Off label use [Unknown]
  - Product use in unapproved indication [Unknown]
  - Flank pain [Unknown]
  - Atrial flutter [Unknown]
  - Muscle atrophy [Unknown]
